FAERS Safety Report 9846174 (Version 1)
Quarter: 2013Q4

REPORT INFORMATION
  Report Type: Spontaneous
  Country: US (occurrence: None)
  Receive Date: 20131223
  Receipt Date: 20131223
  Transmission Date: 20140711
  Serious: Yes (Hospitalization)
  Sender: FDA-Public Use
  Company Number: CABO-13003652

PATIENT
  Age: 58 Year
  Sex: Male
  Weight: 76.8 kg

DRUGS (1)
  1. COMETRIQ (CABOZANTINIB) CAPSULE [Suspect]
     Indication: RENAL CANCER
     Route: 048
     Dates: start: 20131017, end: 20131110

REACTIONS (2)
  - Sepsis [None]
  - Off label use [None]
